FAERS Safety Report 25830479 (Version 1)
Quarter: 2025Q3

REPORT INFORMATION
  Report Type: Spontaneous
  Country: EU (occurrence: EU)
  Receive Date: 20250922
  Receipt Date: 20250922
  Transmission Date: 20251020
  Serious: Yes (Other)
  Sender: ROCHE
  Company Number: EU-ROCHE-10000389194

PATIENT
  Sex: Male
  Weight: 3.5 kg

DRUGS (2)
  1. OCRELIZUMAB [Suspect]
     Active Substance: OCRELIZUMAB
     Indication: Product used for unknown indication
     Route: 064
  2. OCRELIZUMAB [Suspect]
     Active Substance: OCRELIZUMAB
     Route: 063

REACTIONS (4)
  - Foetal exposure during pregnancy [Unknown]
  - B-lymphocyte count decreased [Unknown]
  - Exposure via breast milk [Unknown]
  - Jaundice neonatal [Recovering/Resolving]
